FAERS Safety Report 9553133 (Version 1)
Quarter: 2013Q3

REPORT INFORMATION
  Report Type: Spontaneous
  Country: US (occurrence: US)
  Receive Date: 20130925
  Receipt Date: 20130925
  Transmission Date: 20140515
  Serious: Yes (Hospitalization)
  Sender: FDA-Public Use
  Company Number: US-CELGENEUS-163-POMAL-13092621

PATIENT
  Age: 57 Year
  Sex: Female

DRUGS (2)
  1. POMALYST [Suspect]
     Indication: PLASMA CELL MYELOMA
     Dosage: 2 MILLIGRAM
     Route: 048
     Dates: start: 201306
  2. POMALYST [Suspect]
     Dosage: 1 MILLIGRAM
     Route: 048
     Dates: start: 201309

REACTIONS (5)
  - Dysarthria [Recovered/Resolved]
  - Fluid retention [Recovered/Resolved]
  - Dizziness [Recovered/Resolved]
  - Full blood count decreased [Recovered/Resolved]
  - Diarrhoea [Recovered/Resolved]
